FAERS Safety Report 13987419 (Version 8)
Quarter: 2018Q1

REPORT INFORMATION
  Report Type: Report from Study
  Country: US (occurrence: US)
  Receive Date: 20170919
  Receipt Date: 20180118
  Transmission Date: 20180508
  Serious: Yes (Hospitalization, Other)
  Sender: FDA-Public Use
  Company Number: US-GILEAD-2017-0293928

PATIENT
  Age: 70 Year
  Sex: Male
  Weight: 91.63 kg

DRUGS (6)
  1. TRADJENTA [Concomitant]
     Active Substance: LINAGLIPTIN
  2. CARVEDILOL. [Concomitant]
     Active Substance: CARVEDILOL
  3. SPIRONOLACTONE. [Concomitant]
     Active Substance: SPIRONOLACTONE
  4. AMBRISENTAN [Suspect]
     Active Substance: AMBRISENTAN
     Indication: PULMONARY ARTERIAL HYPERTENSION
     Dosage: 5 MG, QD
     Route: 065
     Dates: start: 20130125
  5. ENALAPRIL [Concomitant]
     Active Substance: ENALAPRIL
  6. TORSEMIDE. [Concomitant]
     Active Substance: TORSEMIDE

REACTIONS (8)
  - Insomnia [Not Recovered/Not Resolved]
  - Unevaluable event [Unknown]
  - Fatigue [Not Recovered/Not Resolved]
  - Asthenia [Not Recovered/Not Resolved]
  - Aortic stenosis [Unknown]
  - Cardiac failure [Unknown]
  - Pulmonary arterial hypertension [Unknown]
  - Hypoacusis [Not Recovered/Not Resolved]
